FAERS Safety Report 8936507 (Version 2)
Quarter: 2013Q4

REPORT INFORMATION
  Report Type: Report from Study
  Country: SE (occurrence: SE)
  Receive Date: 20121130
  Receipt Date: 20131108
  Transmission Date: 20140711
  Serious: Yes (Death, Life-Threatening, Hospitalization)
  Sender: FDA-Public Use
  Company Number: SE-TEVA-373062USA

PATIENT
  Age: 78 Year
  Sex: Female
  Weight: 61.4 kg

DRUGS (10)
  1. BENDAMUSTINE [Suspect]
     Indication: NON-HODGKIN^S LYMPHOMA
     Route: 042
     Dates: start: 20120425
  2. BENDAMUSTINE [Suspect]
     Route: 042
     Dates: start: 20120913
  3. ALLOPURINOL [Concomitant]
     Indication: NON-HODGKIN^S LYMPHOMA
     Dates: start: 20120429
  4. DIAZEPAM [Concomitant]
     Indication: SEDATION
     Dates: start: 20120429
  5. CIPROFLOXACIN [Concomitant]
     Indication: PYREXIA
     Dates: start: 20120524
  6. VALTREX [Concomitant]
     Indication: HERPES VIRUS INFECTION
     Dates: start: 20120525
  7. COCILLANA [Concomitant]
     Indication: BRONCHITIS
     Dates: start: 20120506
  8. OMEPRAZOLE [Concomitant]
     Indication: GASTRITIS
     Dates: start: 20120814
  9. INOLAXOL [Concomitant]
     Dates: start: 20120717
  10. TRIMETHOPRIM [Concomitant]
     Dates: start: 20121005, end: 20121007

REACTIONS (2)
  - Adenocarcinoma [Fatal]
  - Hypokalaemia [Recovered/Resolved]
